FAERS Safety Report 16124385 (Version 1)
Quarter: 2019Q1

REPORT INFORMATION
  Report Type: Spontaneous
  Country: US (occurrence: US)
  Receive Date: 20190327
  Receipt Date: 20190327
  Transmission Date: 20190418
  Serious: Yes (Hospitalization, Disabling, Other)
  Sender: FDA-Public Use
  Company Number: US-SA-2019SA080860

PATIENT
  Age: 91 Year
  Sex: Female

DRUGS (1)
  1. ACT DRY MOUTH LOZENGES [Suspect]
     Active Substance: XYLITOL
     Dosage: UNK

REACTIONS (6)
  - Dyspnoea [Unknown]
  - Thinking abnormal [Unknown]
  - Tooth loss [Unknown]
  - Hospitalisation [Unknown]
  - Walking aid user [Unknown]
  - Injury [Unknown]

NARRATIVE: CASE EVENT DATE: 2016
